FAERS Safety Report 9375250 (Version 1)
Quarter: 2013Q2

REPORT INFORMATION
  Report Type: Spontaneous
  Country: IT (occurrence: IT)
  Receive Date: 20130628
  Receipt Date: 20130628
  Transmission Date: 20140414
  Serious: Yes (Hospitalization)
  Sender: FDA-Public Use
  Company Number: IT-TEVA-414603ISR

PATIENT
  Age: 83 Year
  Sex: Male

DRUGS (8)
  1. ZOLPIDEM [Suspect]
     Indication: INTENTIONAL SELF-INJURY
     Dosage: 15 DOSAGE FORMS DAILY;
     Route: 048
     Dates: start: 20130610, end: 20130610
  2. XANAX [Suspect]
     Dosage: 10 DOSAGE FORMS DAILY;
     Route: 048
     Dates: start: 20130610, end: 20130610
  3. CITICOLINA [Concomitant]
     Dosage: 500 MILLIGRAM DAILY;
     Route: 048
     Dates: start: 20130607, end: 20130610
  4. REMERON 15MG [Concomitant]
  5. ALIFLUS [Concomitant]
  6. VENTOLIN [Concomitant]
  7. DEBRIDAT [Concomitant]
     Dosage: 1 DOSAGE FORMS DAILY;
     Route: 048
     Dates: start: 20130607, end: 20130610
  8. SPIRIVA [Concomitant]

REACTIONS (5)
  - Drug abuse [Recovering/Resolving]
  - Intentional self-injury [Recovering/Resolving]
  - Sopor [Recovering/Resolving]
  - Injury [Recovering/Resolving]
  - Eye injury [Recovering/Resolving]
